FAERS Safety Report 13507785 (Version 3)
Quarter: 2019Q1

REPORT INFORMATION
  Report Type: Spontaneous
  Country: US (occurrence: US)
  Receive Date: 20170503
  Receipt Date: 20190212
  Transmission Date: 20190417
  Serious: No
  Sender: FDA-Public Use
  Company Number: US-PFIZER INC-2017187264

PATIENT
  Age: 53 Year
  Sex: Female
  Weight: 58 kg

DRUGS (6)
  1. CYMBALTA [Suspect]
     Active Substance: DULOXETINE HYDROCHLORIDE
     Indication: MAJOR DEPRESSION
  2. PRISTIQ EXTENDED-RELEASE [Suspect]
     Active Substance: DESVENLAFAXINE SUCCINATE
     Dosage: 100 MG, UNK
     Route: 048
  3. PRISTIQ EXTENDED-RELEASE [Suspect]
     Active Substance: DESVENLAFAXINE SUCCINATE
     Indication: MAJOR DEPRESSION
     Dosage: 100 MG, UNK
     Route: 048
     Dates: start: 201604, end: 20170426
  4. PRISTIQ EXTENDED-RELEASE [Suspect]
     Active Substance: DESVENLAFAXINE SUCCINATE
     Indication: ANTIDEPRESSANT THERAPY
     Dosage: 100 MG, 1X/DAY (MORNING)
     Route: 048
     Dates: start: 2009
  5. CYMBALTA [Suspect]
     Active Substance: DULOXETINE HYDROCHLORIDE
     Indication: ANTIDEPRESSANT THERAPY
     Dosage: 60 MG, 1X/DAY (MORNING)
     Route: 048
  6. ADDERALL [Concomitant]
     Active Substance: AMPHETAMINE ASPARTATE\AMPHETAMINE SULFATE\DEXTROAMPHETAMINE SACCHARATE\DEXTROAMPHETAMINE SULFATE
     Indication: ATTENTION DEFICIT/HYPERACTIVITY DISORDER
     Dosage: 20 MG, DAILY
     Dates: start: 2013

REACTIONS (11)
  - Abdominal pain upper [Unknown]
  - Tremor [Unknown]
  - Feeling cold [Unknown]
  - Palpitations [Recovered/Resolved]
  - Hyperhidrosis [Unknown]
  - Anxiety [Recovered/Resolved]
  - Malaise [Unknown]
  - Nausea [Recovered/Resolved]
  - Vomiting [Unknown]
  - Withdrawal syndrome [Recovered/Resolved]
  - Feeling hot [Unknown]

NARRATIVE: CASE EVENT DATE: 2009
